FAERS Safety Report 6363246-1 (Version None)
Quarter: 2009Q3

REPORT INFORMATION
  Report Type: 
  Country: None (occurrence: None)
  Receive Date: 20090919
  Receipt Date: 20090622
  Transmission Date: 20100115
  Serious: No
  Sender: FDA-Public Use
  Company Number: US-ABBOTT-09P-163-0581610-00

PATIENT
  Sex: Female
  Weight: 74.91 kg

DRUGS (4)
  1. HUMIRA [Suspect]
     Indication: RHEUMATOID ARTHRITIS
     Dates: start: 20090401
  2. UNKNONWN NSAID [Concomitant]
     Indication: RHEUMATOID ARTHRITIS
  3. LEVOXYL [Concomitant]
     Indication: HYPOTHYROIDISM
  4. DOXIPIN [Concomitant]
     Indication: DEPRESSION

REACTIONS (4)
  - ASTHENIA [None]
  - DEPRESSION [None]
  - ERYTHEMA [None]
  - PRURITUS [None]
